FAERS Safety Report 7926335 (Version 2)
Quarter: 2012Q4

REPORT INFORMATION
  Report Type: 
  Country: US (occurrence: US)
  Receive Date: 20110502
  Receipt Date: 20121108
  Transmission Date: 20130627
  Serious: Yes (Hospitalization, Other)
  Sender: FDA-Public Use
  Company Number: US-ASTRAZENECA-2010SE61095

PATIENT
  Age: 47 Year
  Sex: Female

DRUGS (1)
  1. NEXIUM [Suspect]
     Route: 048

REACTIONS (7)
  - Epilepsy [Unknown]
  - Pancreatolithiasis [Unknown]
  - Autoimmune pancreatitis [Unknown]
  - Hypothyroidism [Unknown]
  - Endometriosis [Unknown]
  - Cyst [Unknown]
  - Amnesia [Unknown]
